FAERS Safety Report 17809220 (Version 1)
Quarter: 2020Q2

REPORT INFORMATION
  Report Type: Spontaneous
  Country: GB (occurrence: GB)
  Receive Date: 20200520
  Receipt Date: 20200520
  Transmission Date: 20200714
  Serious: Yes (Death)
  Sender: FDA-Public Use
  Company Number: GB-SAKK-2019SA046918AA

PATIENT
  Age: 75 Year
  Sex: Female

DRUGS (1)
  1. AFLIBERCEPT [Suspect]
     Active Substance: AFLIBERCEPT
     Indication: AGE-RELATED MACULAR DEGENERATION
     Dosage: UNK UNK, UNK
     Route: 050
     Dates: start: 20170629, end: 20181217

REACTIONS (1)
  - Death [Fatal]

NARRATIVE: CASE EVENT DATE: 20181224
